FAERS Safety Report 5127347-8 (Version None)
Quarter: 2006Q4

REPORT INFORMATION
  Report Type: 
  Country: None (occurrence: None)
  Receive Date: 20061010
  Receipt Date: 20060925
  Transmission Date: 20070319
  Serious: Yes (Hospitalization, Other)
  Sender: FDA-Public Use
  Company Number: 2006118335

PATIENT
  Age: 45 Year
  Sex: Male

DRUGS (2)
  1. ATARAX [Suspect]
     Indication: NEUROSIS
     Dosage: ORAL
     Route: 048
     Dates: start: 20050824
  2. PAROXETINE [Suspect]
     Indication: DEPRESSION
     Dosage: 20 MG (1 D), ORAL
     Route: 048
     Dates: start: 20050823, end: 20050823

REACTIONS (9)
  - ABNORMAL BEHAVIOUR [None]
  - DIPLOPIA [None]
  - FEELING ABNORMAL [None]
  - FORMICATION [None]
  - GAS POISONING [None]
  - HYPERHIDROSIS [None]
  - MENTAL DISORDER [None]
  - PALPITATIONS [None]
  - SUICIDE ATTEMPT [None]
